FAERS Safety Report 22388485 (Version 1)
Quarter: 2023Q2

REPORT INFORMATION
  Report Type: Spontaneous
  Country: US (occurrence: None)
  Receive Date: 20230529
  Receipt Date: 20230529
  Transmission Date: 20230722
  Serious: Yes (Death, Hospitalization)
  Sender: FDA-Public Use
  Company Number: None

PATIENT
  Age: 14 Year
  Sex: Male
  Weight: 88.8 kg

DRUGS (13)
  1. CALASPARGASE PEGOL-MKNL [Suspect]
     Active Substance: CALASPARGASE PEGOL-MKNL
     Indication: Precursor T-lymphoblastic lymphoma/leukaemia
     Dosage: OTHER FREQUENCY : DAY 4 OF INDUCTION;?
     Route: 042
     Dates: start: 20230227, end: 20230227
  2. PREDNISONE [Concomitant]
     Active Substance: PREDNISONE
  3. DEXRAZOXANE [Concomitant]
     Active Substance: DEXRAZOXANE
  4. DAUNORUBICIN [Concomitant]
     Active Substance: DAUNORUBICIN
  5. VINCRISTINE [Concomitant]
     Active Substance: VINCRISTINE
  6. BORTEZOMIB [Concomitant]
     Active Substance: BORTEZOMIB
  7. CYCLOPHOSPHAMIDE [Concomitant]
     Active Substance: CYCLOPHOSPHAMIDE
  8. CYTARABINE [Concomitant]
     Active Substance: CYTARABINE
  9. MERCAPTOPURINE [Concomitant]
     Active Substance: MERCAPTOPURINE
  10. PANTOPRAZOLE [Concomitant]
     Active Substance: PANTOPRAZOLE
  11. BACTRIM [Concomitant]
     Active Substance: SULFAMETHOXAZOLE\TRIMETHOPRIM
  12. LEVOFLOXACIN [Concomitant]
     Active Substance: LEVOFLOXACIN
  13. ENOXAPARIN [Concomitant]
     Active Substance: ENOXAPARIN

REACTIONS (9)
  - Pancreatitis [None]
  - Multiple organ dysfunction syndrome [None]
  - Enzyme level increased [None]
  - Hepatic function abnormal [None]
  - Hypotension [None]
  - Lactic acidosis [None]
  - Cardiac arrest [None]
  - Pulmonary haemorrhage [None]
  - Acute kidney injury [None]

NARRATIVE: CASE EVENT DATE: 20230412
